FAERS Safety Report 5711487-6 (Version None)
Quarter: 2008Q2

REPORT INFORMATION
  Report Type: 
  Country: None (occurrence: None)
  Receive Date: 20080421
  Receipt Date: 20080411
  Transmission Date: 20081010
  Serious: Yes (Hospitalization, Disabling, Other)
  Sender: FDA-Public Use
  Company Number: US-MERCK-0705USA02841

PATIENT
  Age: 69 Year
  Sex: Female

DRUGS (1)
  1. FOSAMAX [Suspect]
     Indication: OSTEOPOROSIS
     Route: 048
     Dates: start: 19950101, end: 20060101

REACTIONS (15)
  - ANXIETY [None]
  - ARTHROPATHY [None]
  - BLINDNESS UNILATERAL [None]
  - DEPRESSION [None]
  - HORMONE THERAPY [None]
  - HYPOAESTHESIA ORAL [None]
  - JAW DISORDER [None]
  - ORAL DISORDER [None]
  - ORAL INFECTION [None]
  - PAIN [None]
  - PAIN IN JAW [None]
  - SWELLING [None]
  - TEMPOROMANDIBULAR JOINT SYNDROME [None]
  - TRIGEMINAL NERVE DISORDER [None]
  - TRISMUS [None]
